FAERS Safety Report 16230717 (Version 14)
Quarter: 2020Q2

REPORT INFORMATION
  Report Type: Spontaneous
  Country: US (occurrence: US)
  Receive Date: 20190423
  Receipt Date: 20200513
  Transmission Date: 20200713
  Serious: Yes (Hospitalization)
  Sender: FDA-Public Use
  Company Number: US-ACTELION-A-US2019-188194

PATIENT
  Age: 55 Year
  Sex: Female
  Weight: 69.39 kg

DRUGS (7)
  1. TYVASO [Concomitant]
     Active Substance: TREPROSTINIL
  2. SILDENAFIL CITRATE. [Concomitant]
     Active Substance: SILDENAFIL CITRATE
  3. AMLODIPINE [Concomitant]
     Active Substance: AMLODIPINE BESYLATE
  4. OPSUMIT [Suspect]
     Active Substance: MACITENTAN
     Indication: PULMONARY HYPERTENSION
     Dosage: 10 MG, QD
     Route: 048
  5. COUMADIN [Concomitant]
     Active Substance: WARFARIN SODIUM
  6. REMODULIN [Suspect]
     Active Substance: TREPROSTINIL
     Indication: PRODUCT USED FOR UNKNOWN INDICATION
     Dosage: UNK
     Route: 058
  7. REMODULIN [Suspect]
     Active Substance: TREPROSTINIL
     Dosage: UNK
     Route: 042

REACTIONS (22)
  - Diarrhoea [Recovering/Resolving]
  - Vitreous floaters [Unknown]
  - Dyspnoea [Not Recovered/Not Resolved]
  - Disease progression [Unknown]
  - Feeling hot [Unknown]
  - Catheter site pain [Unknown]
  - Catheter site swelling [Not Recovered/Not Resolved]
  - Catheter site erythema [Not Recovered/Not Resolved]
  - Blood pressure decreased [Unknown]
  - Visual impairment [Unknown]
  - Fluid retention [Unknown]
  - Fatigue [Unknown]
  - Therapy change [Unknown]
  - Heart rate decreased [Unknown]
  - Pulmonary arterial hypertension [Unknown]
  - Lung transplant [Unknown]
  - Oedema peripheral [Unknown]
  - Therapy non-responder [Unknown]
  - Headache [Unknown]
  - Cold sweat [Unknown]
  - Catheter site warmth [Unknown]
  - Nausea [Recovering/Resolving]

NARRATIVE: CASE EVENT DATE: 20190403
